FAERS Safety Report 6122637-4 (Version None)
Quarter: 2009Q1

REPORT INFORMATION
  Report Type: 
  Country: None (occurrence: None)
  Receive Date: 20090318
  Receipt Date: 20090305
  Transmission Date: 20090719
  Serious: Yes (Hospitalization, Disabling, Other)
  Sender: FDA-Public Use
  Company Number: US-ROCHE-541239

PATIENT
  Sex: Male
  Weight: 86.2 kg

DRUGS (4)
  1. ACCUTANE [Suspect]
     Indication: ACNE
     Dosage: REPORTED AS 40MG BID
     Route: 065
     Dates: start: 20031204, end: 20040301
  2. AMNESTEEM [Suspect]
     Indication: ACNE
     Route: 065
     Dates: start: 20040201, end: 20040401
  3. ZYRTEC [Concomitant]
     Route: 065
  4. FLONASE [Concomitant]
     Route: 065

REACTIONS (7)
  - ANAEMIA [None]
  - COLITIS [None]
  - CROHN'S DISEASE [None]
  - EMOTIONAL DISTRESS [None]
  - GASTRITIS [None]
  - INFLAMMATORY BOWEL DISEASE [None]
  - PERICARDITIS [None]
